FAERS Safety Report 7148163-1 (Version None)
Quarter: 2010Q4

REPORT INFORMATION
  Report Type: 
  Country: None (occurrence: None)
  Receive Date: 20101209
  Receipt Date: 20101129
  Transmission Date: 20110411
  Serious: Yes (Hospitalization)
  Sender: FDA-Public Use
  Company Number: US-JNJFOC-20100707715

PATIENT
  Sex: Male
  Weight: 190.51 kg

DRUGS (6)
  1. INFLIXIMAB, RECOMBINANT [Suspect]
     Indication: CROHN'S DISEASE
     Route: 042
  2. INFLIXIMAB, RECOMBINANT [Suspect]
     Route: 042
  3. INFLIXIMAB, RECOMBINANT [Suspect]
     Route: 042
  4. INFLIXIMAB, RECOMBINANT [Suspect]
     Route: 042
  5. INFLIXIMAB, RECOMBINANT [Suspect]
     Dosage: 48 INFUSIONS
     Route: 042
  6. ACETOMINOPHEN [Concomitant]
     Indication: PREMEDICATION

REACTIONS (3)
  - ABDOMINAL ADHESIONS [None]
  - COLON CANCER [None]
  - LARGE INTESTINAL OBSTRUCTION [None]
